FAERS Safety Report 7165520-8 (Version None)
Quarter: 2010Q4

REPORT INFORMATION
  Report Type: 
  Country: None (occurrence: None)
  Receive Date: 20101215
  Receipt Date: 20100302
  Transmission Date: 20110411
  Serious: No
  Sender: FDA-Public Use
  Company Number: US-AMGEN-TCS381359

PATIENT

DRUGS (6)
  1. ENBREL [Suspect]
     Indication: ANKYLOSING SPONDYLITIS
     Dosage: 503 MG, QWK
     Route: 058
     Dates: start: 20091022
  2. VENLAFAXINE HCL [Concomitant]
     Dosage: 37.5 MG, QD
  3. SUMATRIPTAN [Concomitant]
     Dosage: UNK UNK, PRN
  4. LAMOTRIGINE [Concomitant]
     Dosage: 100 MG, QD
  5. RABEPRAZOLE SODIUM [Concomitant]
     Dosage: 20 MG, QD
  6. ERGOCALCIFEROL [Concomitant]
     Dosage: 50000 IU, Q2WK

REACTIONS (6)
  - C-REACTIVE PROTEIN INCREASED [None]
  - CHEST DISCOMFORT [None]
  - INJECTION SITE PAIN [None]
  - PAIN [None]
  - UPPER RESPIRATORY TRACT INFECTION [None]
  - VITAMIN D DEFICIENCY [None]
